FAERS Safety Report 19646604 (Version 4)
Quarter: 2022Q2

REPORT INFORMATION
  Report Type: Spontaneous
  Country: US (occurrence: US)
  Receive Date: 20210802
  Receipt Date: 20220509
  Transmission Date: 20220721
  Serious: Yes (Other)
  Sender: FDA-Public Use
  Company Number: US-PFIZER INC-202100963343

PATIENT
  Age: 76 Year
  Sex: Female
  Weight: 40.82 kg

DRUGS (8)
  1. XELJANZ [Suspect]
     Active Substance: TOFACITINIB CITRATE
     Indication: Irritable bowel syndrome
     Dosage: 10 MG
  2. XELJANZ [Suspect]
     Active Substance: TOFACITINIB CITRATE
     Indication: Colitis
     Dosage: 10 MG, 2X/DAY (10 MG IN THE MORNING AND 10 MG AT NIGHT)
     Dates: start: 202107
  3. TYLENOL WITH CODEINE [Concomitant]
     Active Substance: ACETAMINOPHEN\CODEINE PHOSPHATE
     Indication: Back pain
     Dosage: UNK
  4. ATENOLOL [Concomitant]
     Active Substance: ATENOLOL
     Indication: Supraventricular tachycardia
     Dosage: 25 MG, 2X/DAY (50 MG TABLETS, SHE TAKES 1/2 A TABLET TWICE A DAY SO SHE TAKES 25 MG TWICE A DAY)
     Dates: start: 1991
  5. AMLODIPINE [Concomitant]
     Active Substance: AMLODIPINE BESYLATE
     Dosage: 10 MG, 1X/DAY
  6. ROSUVASTATIN CALCIUM [Concomitant]
     Active Substance: ROSUVASTATIN CALCIUM
     Indication: Osteoporosis
     Dosage: 10 MG, 1X/DAY (ONCE A DAY AT NIGHT TIME)
  7. VITAMIN D3 [Concomitant]
     Active Substance: CHOLECALCIFEROL
     Indication: Hypotension
     Dosage: 50 UG
  8. PRILOSEC [Concomitant]
     Active Substance: OMEPRAZOLE MAGNESIUM
     Indication: Hiatus hernia
     Dosage: UNK

REACTIONS (5)
  - Deafness unilateral [Unknown]
  - Product dose omission issue [Unknown]
  - Fatigue [Unknown]
  - Memory impairment [Unknown]
  - Insomnia [Unknown]

NARRATIVE: CASE EVENT DATE: 20220206
